FAERS Safety Report 20549479 (Version 1)
Quarter: 2022Q1

REPORT INFORMATION
  Report Type: Spontaneous
  Country: JP (occurrence: JP)
  Receive Date: 20220303
  Receipt Date: 20220303
  Transmission Date: 20220423
  Serious: Yes (Other)
  Sender: FDA-Public Use
  Company Number: JP-BRISTOL-MYERS SQUIBB COMPANY-BMS-2022-029848

PATIENT
  Age: 77 Year
  Sex: Female

DRUGS (2)
  1. YERVOY [Suspect]
     Active Substance: IPILIMUMAB
     Indication: Pleural mesothelioma malignant
     Dosage: 1 MILLIGRAM, Q6WK
     Route: 041
     Dates: start: 20220112, end: 20220112
  2. OPDIVO [Suspect]
     Active Substance: NIVOLUMAB
     Indication: Pleural mesothelioma malignant
     Dosage: 240 MILLIGRAM, Q3WK
     Route: 041
     Dates: start: 20220112, end: 20220112

REACTIONS (6)
  - Cushing^s syndrome [Unknown]
  - Blood corticotrophin increased [Unknown]
  - Cortisol increased [Unknown]
  - Pyrexia [Unknown]
  - Dizziness [Unknown]
  - Vomiting [Unknown]
